FAERS Safety Report 22005091 (Version 1)
Quarter: 2023Q1

REPORT INFORMATION
  Report Type: Spontaneous
  Country: CN (occurrence: CN)
  Receive Date: 20230217
  Receipt Date: 20230217
  Transmission Date: 20230417
  Serious: Yes (Other)
  Sender: FDA-Public Use
  Company Number: CN-STERISCIENCE B.V.-2023-ST-000696

PATIENT

DRUGS (19)
  1. VANCOMYCIN [Suspect]
     Active Substance: VANCOMYCIN
     Indication: Product used for unknown indication
     Dosage: UNK
     Route: 064
     Dates: start: 202010
  2. MEROPENEM [Suspect]
     Active Substance: MEROPENEM
     Indication: Product used for unknown indication
     Dosage: UNK
     Route: 064
     Dates: start: 20201022
  3. MEROPENEM [Suspect]
     Active Substance: MEROPENEM
     Dosage: UNK
     Route: 064
     Dates: start: 202010
  4. AZITHROMYCIN [Suspect]
     Active Substance: AZITHROMYCIN
     Indication: Product used for unknown indication
     Dosage: UNK
     Route: 064
     Dates: start: 202010
  5. CEFOPERAZONE [Suspect]
     Active Substance: CEFOPERAZONE
     Indication: Product used for unknown indication
     Dosage: UNK
     Route: 064
     Dates: start: 202010
  6. CEFOPERAZONE [Suspect]
     Active Substance: CEFOPERAZONE
     Dosage: UNK
     Route: 064
     Dates: start: 20201109
  7. DOXYCYCLINE [Suspect]
     Active Substance: DOXYCYCLINE
     Indication: Product used for unknown indication
     Dosage: UNK
     Route: 064
     Dates: start: 202010
  8. DOXYCYCLINE [Suspect]
     Active Substance: DOXYCYCLINE
     Dosage: UNK
     Route: 064
     Dates: start: 20201109
  9. ETHACRIDINE LACTATE [Suspect]
     Active Substance: ETHACRIDINE LACTATE
     Indication: Product used for unknown indication
     Dosage: UNK
     Route: 064
     Dates: start: 202011
  10. MEZLOCILLIN [Suspect]
     Active Substance: MEZLOCILLIN
     Indication: Product used for unknown indication
     Dosage: UNK
     Route: 064
     Dates: start: 202010
  11. MOXIFLOXACIN [Suspect]
     Active Substance: MOXIFLOXACIN
     Indication: Product used for unknown indication
     Dosage: UNK
     Route: 064
     Dates: start: 202010
  12. OSELTAMIVIR [Suspect]
     Active Substance: OSELTAMIVIR
     Indication: Product used for unknown indication
     Dosage: UNK
     Route: 064
     Dates: start: 20201022
  13. OSELTAMIVIR [Suspect]
     Active Substance: OSELTAMIVIR
     Dosage: UNK
     Route: 064
     Dates: start: 202010
  14. POLYMYXIN [Suspect]
     Active Substance: POLYMYXIN
     Indication: Product used for unknown indication
     Dosage: UNK
     Route: 064
     Dates: start: 20201109
  15. SULBACTAM [Suspect]
     Active Substance: SULBACTAM
     Indication: Product used for unknown indication
     Dosage: UNK
     Route: 064
     Dates: start: 202010
  16. SULBACTAM [Suspect]
     Active Substance: SULBACTAM
     Dosage: UNK
     Route: 064
     Dates: start: 202010
  17. SULBACTAM [Suspect]
     Active Substance: SULBACTAM
     Dosage: UNK
     Route: 064
     Dates: start: 20201109
  18. TEICOPLANIN [Suspect]
     Active Substance: TEICOPLANIN
     Indication: Product used for unknown indication
     Dosage: UNK
     Route: 064
     Dates: start: 20201109
  19. VORICONAZOLE [Suspect]
     Active Substance: VORICONAZOLE
     Indication: Product used for unknown indication
     Dosage: UNK
     Route: 064
     Dates: start: 20201109

REACTIONS (2)
  - Premature baby [Unknown]
  - Foetal exposure during pregnancy [Unknown]

NARRATIVE: CASE EVENT DATE: 20200101
